FAERS Safety Report 8483930-3 (Version None)
Quarter: 2012Q3

REPORT INFORMATION
  Report Type: 
  Country: None (occurrence: None)
  Receive Date: 20120703
  Receipt Date: 20120627
  Transmission Date: 20120928
  Serious: Yes (Other)
  Sender: FDA-Public Use
  Company Number: US-PFIZER INC-2012155387

PATIENT
  Sex: Female
  Weight: 93.424 kg

DRUGS (7)
  1. VIBRAMYCIN [Suspect]
     Indication: SINUSITIS
     Dosage: UNK, 1X/DAY
     Route: 048
  2. TRAZODONE [Concomitant]
     Indication: DEPRESSION
     Dosage: 100 MG, UNK
  3. BENADRYL [Concomitant]
     Dosage: UNK
  4. CELANDINE EXTRACT [Concomitant]
     Dosage: UNK
  5. VITAMIN D [Concomitant]
     Dosage: UNK
  6. SYNTHROID [Concomitant]
     Dosage: 150 UG, UNK
  7. AMBIEN [Concomitant]
     Dosage: UNK

REACTIONS (2)
  - OESOPHAGEAL PAIN [None]
  - OESOPHAGEAL ULCER [None]
